FAERS Safety Report 10672120 (Version 2)
Quarter: 2014Q4

REPORT INFORMATION
  Report Type: Report from Study
  Country: US (occurrence: US)
  Receive Date: 20141223
  Receipt Date: 20141223
  Transmission Date: 20150529
  Serious: Yes (Other)
  Sender: FDA-Public Use
  Company Number: US-BAYER-2014-164702

PATIENT
  Age: 73 Year
  Sex: Female

DRUGS (1)
  1. STIVARGA [Suspect]
     Active Substance: REGORAFENIB
     Indication: COLON CANCER METASTATIC
     Dosage: DAILY DOSE 160 MG
     Route: 048
     Dates: start: 20141013, end: 2014

REACTIONS (8)
  - Rectal haemorrhage [Not Recovered/Not Resolved]
  - Metastases to lung [None]
  - Skin necrosis [Recovering/Resolving]
  - Constipation [None]
  - Fatigue [None]
  - Pain [None]
  - Insomnia [None]
  - Nausea [None]
